FAERS Safety Report 7722663-5 (Version None)
Quarter: 2011Q3

REPORT INFORMATION
  Report Type: 
  Country: None (occurrence: None)
  Receive Date: 20110831
  Receipt Date: 20110822
  Transmission Date: 20111222
  Serious: Yes (Hospitalization, Other)
  Sender: FDA-Public Use
  Company Number: US-RB-006675-10

PATIENT
  Age: 31 Year
  Sex: Female

DRUGS (3)
  1. XANAX [Suspect]
     Indication: ANXIETY
     Dosage: DOSING INFORMATION UNKNOWN
     Route: 048
     Dates: end: 20090101
  2. SUBOXONE [Suspect]
     Indication: DRUG DEPENDENCE
     Route: 060
     Dates: start: 20090101, end: 20110201
  3. SUBOXONE [Suspect]
     Indication: PRODUCT USED FOR UNKNOWN INDICATION
     Dosage: SUBLINGUAL FILM; DOSING INFORMATION UNKNOWN
     Route: 065

REACTIONS (22)
  - RASH ERYTHEMATOUS [None]
  - VOMITING [None]
  - MUSCLE SPASMS [None]
  - DYSPHAGIA [None]
  - INSOMNIA [None]
  - NIGHTMARE [None]
  - DYSPEPSIA [None]
  - DIZZINESS [None]
  - AMNESIA [None]
  - LIMB INJURY [None]
  - DRUG WITHDRAWAL SYNDROME [None]
  - MOOD SWINGS [None]
  - CONVULSION [None]
  - NAUSEA [None]
  - NERVOUSNESS [None]
  - ORAL DISCOMFORT [None]
  - HYPERHIDROSIS [None]
  - ANXIETY [None]
  - LOSS OF CONSCIOUSNESS [None]
  - MALAISE [None]
  - PHARYNGITIS STREPTOCOCCAL [None]
  - COLD SWEAT [None]
